FAERS Safety Report 23024225 (Version 1)
Quarter: 2023Q4

REPORT INFORMATION
  Report Type: Spontaneous
  Country: DE (occurrence: DE)
  Receive Date: 20231004
  Receipt Date: 20231004
  Transmission Date: 20240110
  Serious: Yes (Hospitalization, Other)
  Sender: FDA-Public Use
  Company Number: DE-NAPPMUNDI-GBR-2023-0110870

PATIENT
  Age: 42 Year
  Sex: Male

DRUGS (12)
  1. HYDROMORPHONE [Suspect]
     Active Substance: HYDROMORPHONE
     Indication: Pain
     Dosage: UNK
     Route: 065
     Dates: start: 20170706, end: 20170709
  2. IBUPROFEN [Suspect]
     Active Substance: IBUPROFEN
     Indication: Pain
     Dosage: UNK
     Route: 065
     Dates: start: 20170705, end: 20170708
  3. MOXIFLOXACIN [Suspect]
     Active Substance: MOXIFLOXACIN
     Indication: Prophylaxis
     Dosage: UNK
     Route: 065
     Dates: start: 20170706, end: 20170709
  4. ENOXAPARIN SODIUM [Suspect]
     Active Substance: ENOXAPARIN SODIUM
     Indication: Anticoagulant therapy
     Dosage: UNK
     Route: 065
     Dates: start: 20170706, end: 20170709
  5. INSULIN HUMAN [Suspect]
     Active Substance: INSULIN HUMAN
     Indication: Type 2 diabetes mellitus
     Dosage: UNK
     Route: 065
     Dates: start: 20170706, end: 20170709
  6. METAMIZOLE [Suspect]
     Active Substance: METAMIZOLE
     Indication: Pain
     Dosage: UNK
     Route: 065
     Dates: start: 20170705, end: 20170709
  7. QUETIAPINE [Concomitant]
     Active Substance: QUETIAPINE
     Indication: Depression
     Dosage: UNK
     Route: 065
  8. TRIMIPRAMINE [Concomitant]
     Active Substance: TRIMIPRAMINE
     Indication: Depression
     Dosage: UNK
     Route: 065
     Dates: start: 20170612
  9. FOLIC ACID [Concomitant]
     Active Substance: FOLIC ACID
     Indication: Product used for unknown indication
     Dosage: UNK
     Route: 065
     Dates: start: 20170612
  10. INSULIN GLARGINE [Concomitant]
     Active Substance: INSULIN GLARGINE
     Indication: Type 2 diabetes mellitus
     Dosage: UNK
     Route: 065
     Dates: start: 20170612, end: 20170709
  11. VITAMIN D [Concomitant]
     Active Substance: VITAMIN D NOS
     Indication: Product used for unknown indication
     Dosage: UNK
     Route: 065
     Dates: start: 20170612, end: 20170709
  12. CHLORPROTHIXENE HYDROCHLORIDE [Concomitant]
     Active Substance: CHLORPROTHIXENE HYDROCHLORIDE
     Indication: Product used for unknown indication
     Dosage: UNK
     Route: 065
     Dates: start: 20170612, end: 20170709

REACTIONS (4)
  - Generalised bullous fixed drug eruption [Recovering/Resolving]
  - Dehydration [Unknown]
  - Hypotension [Unknown]
  - Tachycardia [Unknown]

NARRATIVE: CASE EVENT DATE: 20170709
